FAERS Safety Report 10179416 (Version 1)
Quarter: 2014Q2

REPORT INFORMATION
  Report Type: Spontaneous
  Country: US (occurrence: None)
  Receive Date: 20140515
  Receipt Date: 20140515
  Transmission Date: 20141212
  Serious: Yes (Death)
  Sender: FDA-Public Use
  Company Number: OTH-PAT-2014005

PATIENT
  Sex: Male

DRUGS (1)
  1. CYSTADANE [Suspect]
     Indication: HOMOCYSTINURIA
     Dates: start: 20070824

REACTIONS (1)
  - Death [None]
